FAERS Safety Report 8368948-3 (Version None)
Quarter: 2012Q2

REPORT INFORMATION
  Report Type: 
  Country: None (occurrence: None)
  Receive Date: 20120516
  Receipt Date: 20120516
  Transmission Date: 20120825
  Serious: Yes (Hospitalization)
  Sender: FDA-Public Use
  Company Number: None

PATIENT
  Age: 24 Year
  Sex: Male
  Weight: 88.6 kg

DRUGS (1)
  1. ZOLPIDEM [Suspect]
     Indication: INSOMNIA
     Dosage: 10 MG HS PO
     Route: 048
     Dates: start: 20101210, end: 20111209

REACTIONS (4)
  - ANXIETY [None]
  - DIAPHRAGMATIC PARALYSIS [None]
  - ANGINA PECTORIS [None]
  - HYPERVENTILATION [None]
